FAERS Safety Report 9349891 (Version 2)
Quarter: 2013Q3

REPORT INFORMATION
  Report Type: Spontaneous
  Country: FR (occurrence: FR)
  Receive Date: 20130614
  Receipt Date: 20130705
  Transmission Date: 20140515
  Serious: Yes (Life-Threatening, Hospitalization, Disabling)
  Sender: FDA-Public Use
  Company Number: FR-ASTRAZENECA-2013SE42880

PATIENT
  Age: 32124 Day
  Sex: Male

DRUGS (7)
  1. CRESTOR [Suspect]
     Indication: HYPERCHOLESTEROLAEMIA
     Route: 048
  2. XARELTO [Suspect]
     Indication: ATRIAL FIBRILLATION
     Route: 048
  3. ACUILIX [Suspect]
     Indication: HYPERTENSION
     Dosage: 20 MG / 12.5 MG PER DOSE, ONE DOSE PER DAY
     Route: 048
  4. VESICARE [Suspect]
     Indication: HYPERTONIC BLADDER
     Route: 048
  5. TOCOPHEROL (ALPHA) [Suspect]
     Route: 048
  6. LANSOPRAZOLE [Suspect]
     Indication: GASTROOESOPHAGEAL REFLUX DISEASE
     Route: 048
  7. SERETIDE [Concomitant]
     Indication: CHRONIC OBSTRUCTIVE PULMONARY DISEASE

REACTIONS (1)
  - Ischaemic stroke [Recovered/Resolved with Sequelae]
